FAERS Safety Report 4680061-5 (Version None)
Quarter: 2005Q2

REPORT INFORMATION
  Report Type: 
  Country: None (occurrence: None)
  Receive Date: 20050525
  Receipt Date: 20050131
  Transmission Date: 20051028
  Serious: No
  Sender: FDA-Public Use
  Company Number: SU-2005-003059

PATIENT
  Age: 49 Year
  Sex: Female
  Weight: 56.6996 kg

DRUGS (7)
  1. BENICAR [Suspect]
     Indication: HYPERTENSION
     Dosage: 10 MG QD PO
     Route: 048
     Dates: start: 20050131, end: 20050201
  2. BENICAR [Suspect]
     Indication: HYPERTENSION
     Dosage: 20 MG QD PO
     Route: 048
     Dates: start: 20050213
  3. VALIUM [Concomitant]
  4. ALLEGRA [Concomitant]
  5. NORINYL [Concomitant]
  6. PROVERA [Concomitant]
  7. NASACORT [Concomitant]

REACTIONS (3)
  - ABDOMINAL PAIN [None]
  - HEART RATE INCREASED [None]
  - NAUSEA [None]
